FAERS Safety Report 23610161 (Version 2)
Quarter: 2024Q1

REPORT INFORMATION
  Report Type: Spontaneous
  Country: CY (occurrence: CY)
  Receive Date: 20240308
  Receipt Date: 20240320
  Transmission Date: 20240410
  Serious: Yes (Hospitalization, Other)
  Sender: FDA-Public Use
  Company Number: CY-SUN PHARMACEUTICAL INDUSTRIES LTD-2024R1-434885

PATIENT
  Age: 67 Year
  Sex: Female

DRUGS (1)
  1. OLANZAPINE [Suspect]
     Active Substance: OLANZAPINE
     Indication: Psychotic disorder
     Dosage: 10 MILLIGRAM
     Route: 048
     Dates: start: 20210117

REACTIONS (1)
  - Hypothermia [Recovered/Resolved]
